FAERS Safety Report 9498741 (Version 1)
Quarter: 2013Q3

REPORT INFORMATION
  Report Type: Spontaneous
  Country: GB (occurrence: GB)
  Receive Date: 20130904
  Receipt Date: 20130904
  Transmission Date: 20140515
  Serious: Yes (Other)
  Sender: FDA-Public Use
  Company Number: GB-TEVA-429693ISR

PATIENT
  Age: 45 Year
  Sex: Female
  Weight: 91 kg

DRUGS (15)
  1. AMITRIPTYLINE [Suspect]
  2. BACLOFEN [Concomitant]
     Dates: start: 20130429, end: 20130527
  3. BACLOFEN [Concomitant]
     Dates: start: 20130603, end: 20130701
  4. LISINOPRIL [Concomitant]
     Dates: start: 20130429, end: 20130527
  5. LISINOPRIL [Concomitant]
     Dates: start: 20130603, end: 20130701
  6. NAPROXEN [Concomitant]
     Dates: start: 20130429, end: 20130527
  7. NAPROXEN [Concomitant]
     Dates: start: 20130603, end: 20130701
  8. OMEPRAZOLE [Concomitant]
     Dates: start: 20130429, end: 20130527
  9. OMEPRAZOLE [Concomitant]
     Dates: start: 20130603, end: 20130701
  10. OXYBUTYNIN [Concomitant]
     Dates: start: 20130429, end: 20130527
  11. PARACETAMOL [Concomitant]
     Dates: start: 20130429, end: 20130527
  12. PARACETAMOL [Concomitant]
     Dates: start: 20130603, end: 20130701
  13. VENTOLIN [Concomitant]
     Dates: start: 20130429, end: 20130527
  14. CODEINE PHOSPHATE [Concomitant]
     Dates: start: 20130603, end: 20130615
  15. FLUOXETINE [Concomitant]
     Dates: start: 20130603, end: 20130802

REACTIONS (3)
  - Hyperhidrosis [Recovered/Resolved]
  - Contusion [Recovered/Resolved]
  - Swelling [Unknown]
